FAERS Safety Report 7356792-5 (Version None)
Quarter: 2011Q1

REPORT INFORMATION
  Report Type: 
  Country: None (occurrence: None)
  Receive Date: 20110316
  Receipt Date: 20110314
  Transmission Date: 20110831
  Serious: Yes (Hospitalization)
  Sender: FDA-Public Use
  Company Number: US-BRISTOL-MYERS SQUIBB COMPANY-14394217

PATIENT
  Age: 71 Year
  Sex: Female

DRUGS (15)
  1. LEVOFLOXACIN [Concomitant]
     Indication: PNEUMONIA
     Dosage: 1 DF=750 NO UNITS:2SEP-2SEP08 500MG:4SEP-4SEP08,2SEP-12SEP08 TD:10DAYS
     Dates: start: 20080902
  2. LEVOFLOXACIN [Concomitant]
     Dates: start: 20080902, end: 20080912
  3. CYANOCOBALAMIN-ZINC TANNATE COMPLEX [Concomitant]
     Indication: VITAMIN SUPPLEMENTATION
     Dates: start: 20030101
  4. CHROMIUM PICOLINATE [Concomitant]
     Indication: SUPPLEMENTATION THERAPY
     Dates: start: 20030101
  5. PROCHLORPERAZINE [Concomitant]
     Indication: NAUSEA
     Dates: start: 20080902, end: 20081103
  6. AMLODIPINE [Concomitant]
     Indication: HYPERTENSION
     Dates: start: 20080905, end: 20081103
  7. CARBOPLATIN [Suspect]
     Indication: LUNG CANCER METASTATIC
     Dosage: 1 DOSAGE FORM = 6MG/ML/MIN
     Route: 042
     Dates: start: 20080814
  8. PACLITAXEL [Suspect]
     Indication: LUNG CANCER METASTATIC
     Route: 042
     Dates: start: 20080814
  9. VIGRAN [Concomitant]
     Indication: SUPPLEMENTATION THERAPY
     Dates: start: 20030101
  10. GELCLAIR [Concomitant]
     Indication: MUCOSAL INFLAMMATION
     Dosage: 1 DF=5 PM
     Dates: start: 20080818
  11. SALBUTAMOL SULFATE [Concomitant]
     Indication: ASTHMA
     Route: 055
     Dates: start: 20050101
  12. ONDANSETRON [Concomitant]
     Indication: PAIN
     Dates: start: 20080909, end: 20080909
  13. OMEPRAZOLE [Concomitant]
     Indication: GASTROOESOPHAGEAL REFLUX DISEASE
     Dates: start: 20050101
  14. OXYCET [Concomitant]
     Indication: PAIN
     Dates: start: 20080812
  15. VANCOMYCIN [Concomitant]
     Indication: PNEUMONIA
     Dates: start: 20080902, end: 20080904

REACTIONS (2)
  - FEBRILE NEUTROPENIA [None]
  - URINARY TRACT INFECTION [None]
